FAERS Safety Report 5102430-1 (Version None)
Quarter: 2006Q3

REPORT INFORMATION
  Report Type: 
  Country: None (occurrence: None)
  Receive Date: 20060908
  Receipt Date: 20060724
  Transmission Date: 20061208
  Serious: Yes (Death, Other)
  Sender: FDA-Public Use
  Company Number: US200604002331

PATIENT
  Age: 55 Year
  Sex: Male
  Weight: 111.1 kg

DRUGS (5)
  1. ZYPREXA [Suspect]
     Dosage: SEE IMAGE
     Dates: start: 20030906, end: 20031025
  2. HALDOL [Concomitant]
  3. DEPAKOTE [Concomitant]
  4. LITHIUM CARBONATE [Concomitant]
  5. MIRTAZAPINE [Concomitant]

REACTIONS (3)
  - DIABETES MELLITUS [None]
  - DIABETIC COMA [None]
  - DIABETIC KETOACIDOSIS [None]
